FAERS Safety Report 7502714-3 (Version None)
Quarter: 2011Q2

REPORT INFORMATION
  Report Type: 
  Country: None (occurrence: None)
  Receive Date: 20110525
  Receipt Date: 20110520
  Transmission Date: 20111010
  Serious: Yes (Death, Hospitalization)
  Sender: FDA-Public Use
  Company Number: PHHY2011BR43897

PATIENT
  Sex: Male

DRUGS (4)
  1. FORMOTEROL FUMARATE [Suspect]
     Indication: LUNG NEOPLASM MALIGNANT
     Dosage: 1 INHALATION EVERY 12 HOURS
  2. ADALAT CC [Concomitant]
     Indication: HYPERTENSION
     Dosage: 20 MG, DAILY
     Route: 048
  3. LOSARTAN POTASSIUM [Concomitant]
     Indication: HYPERTENSION
     Dosage: 50 MG, DAILY
     Route: 048
  4. OXYGEN [Concomitant]

REACTIONS (4)
  - DISORIENTATION [None]
  - METASTASES TO CENTRAL NERVOUS SYSTEM [None]
  - SPEECH DISORDER [None]
  - DYSPNOEA [None]
